FAERS Safety Report 24740174 (Version 1)
Quarter: 2024Q4

REPORT INFORMATION
  Report Type: Report from Study
  Country: US (occurrence: US)
  Receive Date: 20241216
  Receipt Date: 20241216
  Transmission Date: 20250115
  Serious: Yes (Other)
  Sender: JOHNSON AND JOHNSON
  Company Number: US-ABBVIE-6046449

PATIENT
  Sex: Female

DRUGS (1)
  1. IMBRUVICA [Suspect]
     Active Substance: IBRUTINIB
     Indication: B-cell lymphoma
     Route: 048
     Dates: start: 202210

REACTIONS (6)
  - Dementia [Unknown]
  - Renal disorder [Unknown]
  - Urinary tract infection [Unknown]
  - Confusional state [Unknown]
  - Fluid intake reduced [Unknown]
  - Asthenia [Unknown]
